FAERS Safety Report 13447161 (Version 1)
Quarter: 2017Q2

REPORT INFORMATION
  Report Type: Spontaneous
  Country: US (occurrence: US)
  Receive Date: 20170414
  Receipt Date: 20170414
  Transmission Date: 20170830
  Serious: Yes (Death)
  Sender: FDA-Public Use
  Company Number: None

PATIENT
  Age: 62 Year
  Sex: Male

DRUGS (20)
  1. AMBIEN [Concomitant]
     Active Substance: ZOLPIDEM TARTRATE
  2. ATORVASTATIN [Concomitant]
     Active Substance: ATORVASTATIN
  3. INDAPAMIDE. [Concomitant]
     Active Substance: INDAPAMIDE
  4. GLIMPERIDE [Concomitant]
     Active Substance: GLIMEPIRIDE
  5. DEXAMETHASONE. [Concomitant]
     Active Substance: DEXAMETHASONE
  6. PROMETHAZINE [Concomitant]
     Active Substance: PROMETHAZINE\PROMETHAZINE HYDROCHLORIDE
  7. NEULASTA [Suspect]
     Active Substance: PEGFILGRASTIM
  8. JENTADUETO [Concomitant]
     Active Substance: LINAGLIPTIN\METFORMIN HYDROCHLORIDE
  9. PIOGLITAZONE. [Concomitant]
     Active Substance: PIOGLITAZONE
  10. DILAUDID [Concomitant]
     Active Substance: HYDROMORPHONE HYDROCHLORIDE
  11. FISH OIL OMEGA 3 [Concomitant]
     Active Substance: FISH OIL
  12. PANTOPRAZOLE [Concomitant]
     Active Substance: PANTOPRAZOLE
  13. ZOFRAN [Concomitant]
     Active Substance: ONDANSETRON HYDROCHLORIDE
  14. TRADJENTA [Concomitant]
     Active Substance: LINAGLIPTIN
  15. ADRIAMYCIN [Suspect]
     Active Substance: DOXORUBICIN HYDROCHLORIDE
  16. IFOSFAMIDE. [Suspect]
     Active Substance: IFOSFAMIDE
  17. CURCUMIN [Suspect]
     Active Substance: CURCUMIN
     Indication: PROSTATE CANCER
     Route: 048
     Dates: start: 20150304, end: 20151009
  18. COLACE [Concomitant]
     Active Substance: DOCUSATE SODIUM
  19. NYSTATIN. [Concomitant]
     Active Substance: NYSTATIN
  20. MESNA. [Suspect]
     Active Substance: MESNA

REACTIONS (1)
  - Death [None]

NARRATIVE: CASE EVENT DATE: 20161004
